FAERS Safety Report 7422169-7 (Version None)
Quarter: 2011Q2

REPORT INFORMATION
  Report Type: 
  Country: None (occurrence: None)
  Receive Date: 20110418
  Receipt Date: 20110223
  Transmission Date: 20111010
  Serious: Yes (Hospitalization, Other)
  Sender: FDA-Public Use
  Company Number: US-BAYER-2010-004404

PATIENT
  Age: 38 Year
  Sex: Female
  Weight: 72.3 kg

DRUGS (10)
  1. YAZ [Suspect]
     Dosage: UNK
     Route: 048
     Dates: start: 20070820, end: 20071209
  2. IBUPROFEN [Concomitant]
     Dosage: 800 MG, TID
     Dates: start: 20070207, end: 20070207
  3. ALBUTEROL [Concomitant]
     Dosage: 90 ?G, 2 PUFFS EVERY 4 HOURS
     Route: 045
     Dates: start: 20010529, end: 20071209
  4. VITAMIN D [Concomitant]
  5. CYCLOBENZAPRINE HYDROCHLORIDE [Concomitant]
     Indication: MUSCLE TIGHTNESS
     Dosage: 10 MG, TID AS NEEDED
     Dates: start: 20070207, end: 20070207
  6. FISH OIL [Concomitant]
     Dosage: 2 G, DAILY
     Route: 048
  7. AZITHROMYCIN [Concomitant]
     Dosage: 250 MG,
     Dates: start: 20071209, end: 20071230
  8. CALCIUM [Concomitant]
     Dosage: 500 MG, DAILY
     Route: 048
  9. ALBUTEROL [Concomitant]
     Dosage: UNK
     Dates: start: 20071209, end: 20071213
  10. IBUPROFEN [Concomitant]
     Dosage: 600 MG, UNK
     Route: 048

REACTIONS (6)
  - PULMONARY EMBOLISM [None]
  - CHEST PAIN [None]
  - PAIN [None]
  - ANXIETY [None]
  - DYSPNOEA [None]
  - BRONCHOSPASM [None]
